FAERS Safety Report 7345737-X (Version None)
Quarter: 2011Q1

REPORT INFORMATION
  Report Type: 
  Country: None (occurrence: None)
  Receive Date: 20110311
  Receipt Date: 20110303
  Transmission Date: 20110831
  Serious: Yes (Other)
  Sender: FDA-Public Use
  Company Number: AU-AMGEN-AUSSP2011008239

PATIENT
  Age: 33 Year
  Sex: Female

DRUGS (2)
  1. ENBREL [Suspect]
     Indication: PSORIATIC ARTHROPATHY
     Dosage: 50 MG, WEEKLY
     Route: 058
     Dates: start: 20091101
  2. METHOTREXATE SODIUM [Concomitant]
     Indication: PSORIATIC ARTHROPATHY
     Dosage: 7.5 MG, WEEKLY
     Route: 048
     Dates: start: 20060101

REACTIONS (2)
  - DIZZINESS [None]
  - AMNESIA [None]
